FAERS Safety Report 7219623-X (Version None)
Quarter: 2010Q4

REPORT INFORMATION
  Report Type: 
  Country: None (occurrence: None)
  Receive Date: 20101126
  Receipt Date: 20100916
  Transmission Date: 20110411
  Serious: No
  Sender: FDA-Public Use
  Company Number: 314124

PATIENT
  Sex: Female

DRUGS (1)
  1. VICTOZA [Suspect]
     Indication: TYPE 2 DIABETES MELLITUS
     Dates: start: 20100825

REACTIONS (4)
  - DECREASED APPETITE [None]
  - MALAISE [None]
  - MUSCLE SPASMS [None]
  - NAUSEA [None]
